FAERS Safety Report 14978797 (Version 1)
Quarter: 2018Q2

REPORT INFORMATION
  Report Type: Spontaneous
  Country: SE (occurrence: SE)
  Receive Date: 20180606
  Receipt Date: 20180606
  Transmission Date: 20180711
  Serious: Yes (Other)
  Sender: FDA-Public Use
  Company Number: SE-IPSEN BIOPHARMACEUTICALS, INC.-2018-08146

PATIENT
  Sex: Female

DRUGS (1)
  1. IRINOTECAN LIPOSOME [Suspect]
     Active Substance: IRINOTECAN
     Indication: PANCREATIC CARCINOMA METASTATIC
     Dosage: NOT REPORTED
     Route: 065

REACTIONS (4)
  - Metastases to central nervous system [Unknown]
  - Weight decreased [Unknown]
  - Neurological symptom [Unknown]
  - Metastases to lymph nodes [Recovering/Resolving]
